FAERS Safety Report 5632576-0 (Version None)
Quarter: 2008Q1

REPORT INFORMATION
  Report Type: 
  Country: None (occurrence: None)
  Receive Date: 20080131
  Receipt Date: 20071008
  Transmission Date: 20080703
  Serious: No
  Sender: FDA-Public Use
  Company Number: 163-21880-07100570

PATIENT
  Sex: Male

DRUGS (4)
  1. REVLIMID [Suspect]
     Indication: MULTIPLE MYELOMA
     Dosage: X21 DAYS EVERY 28 DAYS, ORAL ; X21 DAYS EVERY 28 DAYS, ORAL
     Route: 048
     Dates: start: 20060701, end: 20061101
  2. REVLIMID [Suspect]
     Indication: MULTIPLE MYELOMA
     Dosage: X21 DAYS EVERY 28 DAYS, ORAL ; X21 DAYS EVERY 28 DAYS, ORAL
     Route: 048
     Dates: start: 20061201
  3. DEXAMETHASONE TAB [Concomitant]
  4. ASPIRIN [Concomitant]

REACTIONS (2)
  - BRONCHITIS [None]
  - OEDEMA PERIPHERAL [None]
